FAERS Safety Report 24907479 (Version 2)
Quarter: 2025Q1

REPORT INFORMATION
  Report Type: Spontaneous
  Country: GB (occurrence: GB)
  Receive Date: 20250130
  Receipt Date: 20250313
  Transmission Date: 20250408
  Serious: Yes (Other)
  Sender: ASCEND THERAPEUTICS US, LLC
  Company Number: GB-Ascend Therapeutics US, LLC-2170177

PATIENT
  Age: 57 Year
  Sex: Male

DRUGS (2)
  1. ANDROGEL [Suspect]
     Active Substance: TESTOSTERONE
     Indication: Blood testosterone decreased
  2. TESTOSTERONE [Suspect]
     Active Substance: TESTOSTERONE

REACTIONS (6)
  - Erectile dysfunction [Not Recovered/Not Resolved]
  - Abnormal behaviour [Unknown]
  - Erection increased [Not Recovered/Not Resolved]
  - Mood swings [Not Recovered/Not Resolved]
  - Condition aggravated [Not Recovered/Not Resolved]
  - Glucose tolerance impaired [Not Recovered/Not Resolved]
